FAERS Safety Report 8089003-6 (Version None)
Quarter: 2012Q1

REPORT INFORMATION
  Report Type: 
  Country: None (occurrence: None)
  Receive Date: 20120128
  Receipt Date: 20110705
  Transmission Date: 20120608
  Serious: No
  Sender: FDA-Public Use
  Company Number: US-ABBOTT-11P-163-0837231-00

PATIENT
  Sex: Female

DRUGS (5)
  1. HUMIRA [Suspect]
     Indication: RHEUMATOID ARTHRITIS
     Route: 058
     Dates: start: 20101201
  2. ASPIRIN [Concomitant]
     Indication: HEADACHE
     Route: 048
  3. METROGEL [Concomitant]
     Indication: ACNE
     Route: 061
  4. PREDNISONE TAB [Concomitant]
     Indication: RHEUMATOID ARTHRITIS
     Route: 048
  5. METROGEL [Concomitant]
     Indication: EXFOLIATIVE RASH

REACTIONS (6)
  - EXFOLIATIVE RASH [None]
  - WEIGHT INCREASED [None]
  - PRURITUS [None]
  - SKIN EXFOLIATION [None]
  - SKIN FISSURES [None]
  - EYELID DISORDER [None]
